FAERS Safety Report 9029937 (Version 7)
Quarter: 2014Q1

REPORT INFORMATION
  Report Type: Spontaneous
  Country: DE (occurrence: DE)
  Receive Date: 20130125
  Receipt Date: 20140213
  Transmission Date: 20141002
  Serious: Yes (Hospitalization, Disabling)
  Sender: FDA-Public Use
  Company Number: DE-BIOGENIDEC-2013BI005879

PATIENT
  Age: 49 Year
  Sex: Male
  Weight: 83 kg

DRUGS (4)
  1. TYSABRI [Suspect]
     Indication: RELAPSING-REMITTING MULTIPLE SCLEROSIS
     Route: 042
     Dates: start: 2007, end: 20121127
  2. MIRTAZAPINE [Concomitant]
     Indication: DEPRESSION
     Dates: start: 200712
  3. FLUOXETINE [Concomitant]
     Indication: DEPRESSION
  4. SERTRALINE [Concomitant]
     Indication: DEPRESSION
     Dates: start: 200804

REACTIONS (9)
  - Vasculitis cerebral [Not Recovered/Not Resolved]
  - Blindness [Not Recovered/Not Resolved]
  - Retinal artery occlusion [Not Recovered/Not Resolved]
  - Cerebral infarction [Not Recovered/Not Resolved]
  - Herpes zoster meningoencephalitis [Not Recovered/Not Resolved]
  - Ophthalmic herpes zoster [Not Recovered/Not Resolved]
  - Headache [Recovered/Resolved]
  - Charles Bonnet syndrome [Unknown]
  - Multiple sclerosis relapse [Recovered/Resolved]
